FAERS Safety Report 13253794 (Version 3)
Quarter: 2017Q1

REPORT INFORMATION
  Report Type: Report from Study
  Country: CO (occurrence: CO)
  Receive Date: 20170220
  Receipt Date: 20170328
  Transmission Date: 20170428
  Serious: Yes (Hospitalization, Other)
  Sender: FDA-Public Use
  Company Number: CO-AMGEN-COLSL2016131336

PATIENT
  Age: 81 Year
  Sex: Male
  Weight: 57 kg

DRUGS (1)
  1. VECTIBIX [Suspect]
     Active Substance: PANITUMUMAB
     Indication: COLORECTAL CANCER METASTATIC
     Dosage: 340 MG, Q2WK (BIWEEKLY)
     Route: 042
     Dates: start: 20160926, end: 20170127

REACTIONS (7)
  - Colorectal cancer metastatic [Not Recovered/Not Resolved]
  - Localised oedema [Recovering/Resolving]
  - Erythema [Recovering/Resolving]
  - Angina unstable [Not Recovered/Not Resolved]
  - Skin fissures [Recovering/Resolving]
  - Cerebellar ischaemia [Not Recovered/Not Resolved]
  - Post inflammatory pigmentation change [Recovering/Resolving]

NARRATIVE: CASE EVENT DATE: 20161202
